FAERS Safety Report 6400176-0 (Version None)
Quarter: 2009Q4

REPORT INFORMATION
  Report Type: 
  Country: None (occurrence: None)
  Receive Date: 20091014
  Receipt Date: 20091005
  Transmission Date: 20100525
  Serious: Yes (Death, Hospitalization)
  Sender: FDA-Public Use
  Company Number: US-JNJFOC-20090907740

PATIENT
  Sex: Female
  Weight: 68.3 kg

DRUGS (18)
  1. DARUNAVIR [Suspect]
     Route: 048
  2. DARUNAVIR [Suspect]
     Indication: HIV INFECTION
     Route: 048
  3. ACETAMINOPHEN [Suspect]
  4. ACETAMINOPHEN [Suspect]
     Indication: DRUG USE FOR UNKNOWN INDICATION
  5. RALTEGRAVIR [Concomitant]
     Route: 048
  6. RALTEGRAVIR [Concomitant]
     Indication: HIV INFECTION
     Route: 048
  7. RITONAVIR [Concomitant]
  8. RITONAVIR [Concomitant]
     Indication: HIV INFECTION
  9. MARAVIROC [Concomitant]
  10. MARAVIROC [Concomitant]
     Indication: HIV INFECTION
  11. HYDROCHLOROTHIAZIDE [Concomitant]
     Route: 048
  12. ZESTRIL [Concomitant]
     Route: 048
  13. TOPROL-XL [Concomitant]
     Route: 048
  14. EFFEXOR XR [Concomitant]
     Route: 048
  15. LAMICTAL [Concomitant]
     Route: 048
  16. REMERON [Concomitant]
     Route: 048
  17. COLACE [Concomitant]
  18. TRAZODONE HYDROCHLORIDE [Concomitant]
     Route: 048

REACTIONS (2)
  - ASCITES [None]
  - INTRA-ABDOMINAL HAEMORRHAGE [None]
